FAERS Safety Report 21997356 (Version 1)
Quarter: 2023Q1

REPORT INFORMATION
  Report Type: Spontaneous
  Country: US (occurrence: US)
  Receive Date: 20230216
  Receipt Date: 20230216
  Transmission Date: 20230418
  Serious: No
  Sender: FDA-Public Use
  Company Number: US-drreddys-SPO/USA/23/0159547

PATIENT
  Age: 30 Year
  Sex: Female

DRUGS (1)
  1. ZENATANE [Suspect]
     Active Substance: ISOTRETINOIN
     Indication: Acne
     Dosage: RMA ISSUE DATE: 26 OCTOBER 2022 03:34:34 PM, 22 NOVEMBER 2022 11:28:12 AM

REACTIONS (3)
  - Gastrooesophageal reflux disease [Unknown]
  - Pain [Unknown]
  - Vision blurred [Unknown]
